FAERS Safety Report 16353096 (Version 2)
Quarter: 2019Q4

REPORT INFORMATION
  Report Type: Report from Study
  Country: US (occurrence: US)
  Receive Date: 20190524
  Receipt Date: 20191230
  Transmission Date: 20200122
  Serious: Yes (Hospitalization, Other)
  Sender: FDA-Public Use
  Company Number: US-BRISTOL-MYERS SQUIBB COMPANY-BMS-2019-045203

PATIENT
  Age: 80 Year
  Sex: Male

DRUGS (1)
  1. IPILIMUMAB [Suspect]
     Active Substance: IPILIMUMAB
     Indication: METASTATIC MALIGNANT MELANOMA
     Dosage: 3 MILLIGRAM/KILOGRAM
     Route: 042
     Dates: start: 20190109

REACTIONS (8)
  - Abdominal distension [Recovering/Resolving]
  - Lymphocytic hypophysitis [Recovering/Resolving]
  - Hypothyroidism [Recovering/Resolving]
  - Constipation [Recovering/Resolving]
  - Type 2 diabetes mellitus [Recovering/Resolving]
  - Small intestinal obstruction [Recovered/Resolved]
  - Adrenal insufficiency [Recovering/Resolving]
  - Vomiting [Recovering/Resolving]

NARRATIVE: CASE EVENT DATE: 20190412
